FAERS Safety Report 13863410 (Version 4)
Quarter: 2019Q1

REPORT INFORMATION
  Report Type: Spontaneous
  Country: US (occurrence: US)
  Receive Date: 20170814
  Receipt Date: 20190318
  Transmission Date: 20190417
  Serious: Yes (Other)
  Sender: FDA-Public Use
  Company Number: US-PFIZER INC-2017346728

PATIENT
  Age: 41 Year
  Sex: Female
  Weight: 66 kg

DRUGS (2)
  1. GENOTROPIN MQ [Suspect]
     Active Substance: SOMATROPIN
     Indication: HORMONE REPLACEMENT THERAPY
     Dosage: 1 MG, 1X/DAY
     Dates: start: 200711
  2. GENOTROPIN MQ [Suspect]
     Active Substance: SOMATROPIN
     Indication: MUSCULOSKELETAL DISORDER
     Dosage: 1 MG, DAILY

REACTIONS (11)
  - Blindness unilateral [Unknown]
  - Abdominal discomfort [Unknown]
  - Headache [Unknown]
  - Loss of consciousness [Unknown]
  - Eye swelling [Unknown]
  - Pain in extremity [Not Recovered/Not Resolved]
  - Fatigue [Not Recovered/Not Resolved]
  - Feeling hot [Unknown]
  - Insulin-like growth factor decreased [Unknown]
  - Vitamin D decreased [Unknown]
  - Eye pain [Unknown]

NARRATIVE: CASE EVENT DATE: 20130211
